FAERS Safety Report 14778312 (Version 1)
Quarter: 2018Q2

REPORT INFORMATION
  Report Type: Spontaneous
  Country: AT (occurrence: AT)
  Receive Date: 20180419
  Receipt Date: 20180419
  Transmission Date: 20180711
  Serious: Yes (Other)
  Sender: FDA-Public Use
  Company Number: AT-ROCHE-2109662

PATIENT
  Age: 67 Year
  Sex: Female

DRUGS (1)
  1. LUCENTIS [Suspect]
     Active Substance: RANIBIZUMAB
     Indication: DETACHMENT OF RETINAL PIGMENT EPITHELIUM
     Route: 050

REACTIONS (2)
  - Visual acuity reduced [Unknown]
  - Retinal pigment epithelial tear [Unknown]
